FAERS Safety Report 7199821-4 (Version None)
Quarter: 2010Q4

REPORT INFORMATION
  Report Type: 
  Country: None (occurrence: None)
  Receive Date: 20101228
  Receipt Date: 20101215
  Transmission Date: 20110411
  Serious: Yes (Hospitalization)
  Sender: FDA-Public Use
  Company Number: JP-ROCHE-749635

PATIENT
  Sex: Male
  Weight: 62 kg

DRUGS (25)
  1. TOCILIZUMAB [Suspect]
     Indication: RHEUMATOID ARTHRITIS
     Route: 041
     Dates: start: 20080725, end: 20080725
  2. TOCILIZUMAB [Suspect]
     Route: 041
     Dates: start: 20080826, end: 20080826
  3. TOCILIZUMAB [Suspect]
     Route: 041
     Dates: start: 20080916, end: 20080916
  4. TOCILIZUMAB [Suspect]
     Route: 041
     Dates: start: 20081010, end: 20081010
  5. TOCILIZUMAB [Suspect]
     Route: 041
     Dates: start: 20081104, end: 20081104
  6. TOCILIZUMAB [Suspect]
     Route: 041
     Dates: start: 20081201, end: 20081201
  7. TOCILIZUMAB [Suspect]
     Route: 041
     Dates: start: 20081226, end: 20081226
  8. TOCILIZUMAB [Suspect]
     Route: 041
     Dates: start: 20090123, end: 20090123
  9. TOCILIZUMAB [Suspect]
     Route: 041
     Dates: start: 20090408, end: 20090408
  10. TOCILIZUMAB [Suspect]
     Route: 041
     Dates: start: 20090508, end: 20090508
  11. TOCILIZUMAB [Suspect]
     Route: 041
     Dates: start: 20090601, end: 20090601
  12. TOCILIZUMAB [Suspect]
     Route: 041
     Dates: start: 20090630
  13. PREDNISOLONE [Concomitant]
     Dosage: DOSE FORM: PERORAL AGENT
     Route: 048
     Dates: start: 20080313, end: 20080915
  14. PREDNISOLONE [Concomitant]
     Route: 048
     Dates: start: 20080916
  15. PREDNISOLONE [Concomitant]
     Route: 048
  16. METHYCOBAL [Concomitant]
     Dosage: DOSE FORM: PERORAL AGENT
     Route: 048
     Dates: start: 20080313
  17. LOSARTAN POTASSIUM AND HYDROCHLOROTHIAZIDE [Concomitant]
     Route: 048
     Dates: start: 20080313
  18. COMELIAN [Concomitant]
     Dosage: DOSE FORM: PERORAL AGENT
     Route: 048
     Dates: start: 20080313
  19. LOXONIN [Concomitant]
     Dosage: DOSE FORM: PERORAL AGENT
     Route: 048
     Dates: start: 20080313
  20. KREMEZIN [Concomitant]
     Dosage: DOSE FORM: PERORAL AGENT
     Route: 048
     Dates: start: 20080313
  21. TAKEPRON [Concomitant]
     Route: 048
  22. JUVELA N [Concomitant]
     Dosage: DOSE FORM: PERORAL AGENT
     Route: 048
  23. FERROUS CITRATE [Concomitant]
     Dosage: DOSE FORM: PERORAL AGENT
     Route: 048
  24. VOLTAREN [Concomitant]
     Dosage: DOSE FORM: SUPPOSITORIAE RECTALE
     Route: 054
  25. MAGMITT [Concomitant]
     Route: 048
     Dates: start: 20080313

REACTIONS (2)
  - KNEE ARTHROPLASTY [None]
  - LYMPHOPENIA [None]
